FAERS Safety Report 7138673-5 (Version None)
Quarter: 2010Q4

REPORT INFORMATION
  Report Type: 
  Country: None (occurrence: None)
  Receive Date: 20101206
  Receipt Date: 20101123
  Transmission Date: 20110411
  Serious: Yes (Other)
  Sender: FDA-Public Use
  Company Number: CA-MERCK-1011USA03406

PATIENT
  Age: 60 Year
  Sex: Male
  Weight: 87 kg

DRUGS (6)
  1. EMEND [Suspect]
     Indication: ANTIEMETIC SUPPORTIVE CARE
     Route: 048
     Dates: start: 20101026
  2. EMEND [Suspect]
     Route: 048
  3. EMEND [Suspect]
     Route: 048
     Dates: end: 20101029
  4. CISPLATIN [Concomitant]
     Indication: LIP AND/OR ORAL CAVITY CANCER
     Route: 042
     Dates: start: 20101026
  5. DEXAMETHASONE [Concomitant]
     Indication: LIP AND/OR ORAL CAVITY CANCER
     Route: 048
     Dates: start: 20101026
  6. STEMETIL [Concomitant]
     Indication: LIP AND/OR ORAL CAVITY CANCER
     Route: 065
     Dates: start: 20101026

REACTIONS (1)
  - HEPATIC ENZYME INCREASED [None]
